FAERS Safety Report 7894745-9 (Version None)
Quarter: 2011Q4

REPORT INFORMATION
  Report Type: 
  Country: None (occurrence: None)
  Receive Date: 20111106
  Receipt Date: 20110818
  Transmission Date: 20120403
  Serious: No
  Sender: FDA-Public Use
  Company Number: US-AMGEN-USASP2011042145

PATIENT
  Age: 62 Year
  Sex: Male

DRUGS (1)
  1. ENBREL [Suspect]
     Indication: RHEUMATOID ARTHRITIS
     Dosage: 25 MG, ONCE IN THREE DAYS
     Dates: start: 20090101, end: 20110727

REACTIONS (7)
  - INFECTION SUSCEPTIBILITY INCREASED [None]
  - FATIGUE [None]
  - DETOXIFICATION [None]
  - INFLUENZA [None]
  - NAUSEA [None]
  - HYPERHIDROSIS [None]
  - CHILLS [None]
